FAERS Safety Report 7970613-9 (Version None)
Quarter: 2011Q4

REPORT INFORMATION
  Report Type: 
  Country: None (occurrence: None)
  Receive Date: 20111212
  Receipt Date: 20111205
  Transmission Date: 20120403
  Serious: Yes (Other)
  Sender: FDA-Public Use
  Company Number: ES-ROXANE LABORATORIES, INC.-2011-RO-01738RO

PATIENT
  Age: 53 Year
  Sex: Male

DRUGS (4)
  1. AZATHIOPRINE [Suspect]
     Indication: CROHN'S DISEASE
     Dosage: 75 MG
     Dates: start: 20020101
  2. STEROIDS [Concomitant]
     Indication: CROHN'S DISEASE
     Dates: start: 20061201
  3. AZATHIOPRINE [Suspect]
     Dosage: 200 MG
  4. MESALAMINE [Suspect]
     Indication: CROHN'S DISEASE
     Dosage: 1500 MG
     Dates: start: 20020101

REACTIONS (3)
  - CROHN'S DISEASE [None]
  - NODULAR REGENERATIVE HYPERPLASIA [None]
  - HEPATOTOXICITY [None]
